FAERS Safety Report 15689935 (Version 11)
Quarter: 2019Q1

REPORT INFORMATION
  Report Type: Spontaneous
  Country: CA (occurrence: CA)
  Receive Date: 20181205
  Receipt Date: 20190316
  Transmission Date: 20190417
  Serious: Yes (Hospitalization, Other)
  Sender: FDA-Public Use
  Company Number: CA-CELLTRION INC.-2018CA021557

PATIENT

DRUGS (10)
  1. INFLECTRA [Suspect]
     Active Substance: INFLIXIMAB-DYYB
     Indication: CROHN^S DISEASE
     Dosage: 363 MG, EVERY (Q) 0, 2, 6  WEEKS, THEN EVERY 8 WEEKS
     Route: 042
     Dates: start: 20180531
  2. MULTIIVITAMIN  [ASCORBIC ACID;COLECALCIFEROL;NICOTINAMIDE;PANTHENOL;PY [Concomitant]
     Dosage: UNK
  3. INFLECTRA [Suspect]
     Active Substance: INFLIXIMAB-DYYB
     Dosage: 380 MG, Q 0,2,6 WEEKS AND THEN EVERY 8 WEKS (RE-INDUCTION)
     Route: 042
     Dates: start: 20190110, end: 20190110
  4. INFLECTRA [Suspect]
     Active Substance: INFLIXIMAB-DYYB
     Dosage: 345 MG, (EVERY 6 WEEKS THEN EVERY 8 WEELS)
     Route: 042
     Dates: start: 20190207, end: 20190207
  5. INFLECTRA [Suspect]
     Active Substance: INFLIXIMAB-DYYB
     Dosage: 363 MG, EVERY (Q) 0, 2, 6  WEEKS, THEN EVERY 8 WEEKS
     Route: 042
     Dates: start: 20180712, end: 20180712
  6. INFLECTRA [Suspect]
     Active Substance: INFLIXIMAB-DYYB
     Dosage: 380 MG, Q 0, 2, 6  WEEKS, THEN EVERY 8 WEEKS (RE-INDUCTION)
     Route: 042
     Dates: start: 20181219
  7. INFLECTRA [Suspect]
     Active Substance: INFLIXIMAB-DYYB
     Dosage: 363 MG, EVERY (Q) 0, 2, 6  WEEKS, THEN EVERY 8 WEEKS
     Route: 042
     Dates: start: 20180614
  8. OMEGA 3 6 9 [Concomitant]
     Active Substance: FISH OIL
     Dosage: UNK
     Route: 048
  9. ENTOCORT [Concomitant]
     Active Substance: BUDESONIDE
     Dosage: 3 MG, TID
     Route: 048
     Dates: start: 201802
  10. VITAMIN D [Concomitant]
     Active Substance: CHOLECALCIFEROL
     Dosage: UNK

REACTIONS (18)
  - Fungal skin infection [Unknown]
  - Malaise [Not Recovered/Not Resolved]
  - Pain [Recovered/Resolved]
  - Malaise [Unknown]
  - Infusion related reaction [Recovered/Resolved]
  - Nausea [Recovered/Resolved]
  - Musculoskeletal stiffness [Not Recovered/Not Resolved]
  - Chills [Recovered/Resolved]
  - Nail disorder [Unknown]
  - Pain in extremity [Recovered/Resolved]
  - Flushing [Recovering/Resolving]
  - Product use issue [Unknown]
  - Pruritus [Recovered/Resolved]
  - Drug specific antibody present [Unknown]
  - Crohn^s disease [Unknown]
  - Condition aggravated [Unknown]
  - Reflux gastritis [Unknown]
  - Inappropriate schedule of product administration [Unknown]

NARRATIVE: CASE EVENT DATE: 20180709
